FAERS Safety Report 6769589-1 (Version None)
Quarter: 2010Q2

REPORT INFORMATION
  Report Type: 
  Country: None (occurrence: None)
  Receive Date: 20100610
  Receipt Date: 20100506
  Transmission Date: 20101027
  Serious: Yes (Hospitalization)
  Sender: FDA-Public Use
  Company Number: 2010RR-33796

PATIENT
  Age: 73 Year
  Sex: Female

DRUGS (10)
  1. ESOMEPRAZOLE MAGNESIUM [Suspect]
  2. OMEPRAZOLE [Suspect]
     Indication: GASTROOESOPHAGEAL REFLUX DISEASE
     Dates: start: 19990101
  3. PANTOPRAZOLE [Suspect]
     Dosage: 40 MILLIGRAM (S), 1 IN 1 DAY
  4. CALCIUM CARBONATE [Concomitant]
  5. CIMETIDINE [Concomitant]
  6. FUROSEMIDE [Concomitant]
  7. MAGNESIUM [Concomitant]
  8. MAGNESIUM SULFATE [Concomitant]
  9. RANITIDINE [Concomitant]
  10. VITAMIN D [Concomitant]

REACTIONS (16)
  - ABDOMINAL PAIN [None]
  - ARTHRALGIA [None]
  - ASTHENIA [None]
  - BALANCE DISORDER [None]
  - CHEST PAIN [None]
  - CIRCULATORY COLLAPSE [None]
  - DIARRHOEA [None]
  - DYSPEPSIA [None]
  - FALL [None]
  - HYPOCALCAEMIA [None]
  - HYPOMAGNESAEMIA [None]
  - LETHARGY [None]
  - MUSCLE SPASMS [None]
  - PARAESTHESIA [None]
  - RASH PRURITIC [None]
  - TETANY [None]
